FAERS Safety Report 11172792 (Version 1)
Quarter: 2015Q2

REPORT INFORMATION
  Report Type: Spontaneous
  Country: CO (occurrence: CO)
  Receive Date: 20150608
  Receipt Date: 20150608
  Transmission Date: 20150821
  Serious: Yes (Other)
  Sender: FDA-Public Use
  Company Number: CO-BAYER-2015-307743

PATIENT
  Age: 44 Year
  Sex: Female

DRUGS (2)
  1. MACRODANTIN [Concomitant]
     Active Substance: NITROFURANTOIN
     Dosage: UNK
  2. CIPRO [Suspect]
     Active Substance: CIPROFLOXACIN HYDROCHLORIDE
     Indication: PYELONEPHRITIS
     Dosage: 1 DF, BID
     Route: 048
     Dates: start: 20150527, end: 2015

REACTIONS (5)
  - Rash [Recovering/Resolving]
  - Vomiting [Recovering/Resolving]
  - Nausea [Recovering/Resolving]
  - Headache [Recovering/Resolving]
  - Blood pressure increased [Recovering/Resolving]

NARRATIVE: CASE EVENT DATE: 20150527
